FAERS Safety Report 18881172 (Version 1)
Quarter: 2021Q1

REPORT INFORMATION
  Report Type: Spontaneous
  Country: JP (occurrence: JP)
  Receive Date: 20210211
  Receipt Date: 20210211
  Transmission Date: 20210420
  Serious: Yes (Other)
  Sender: FDA-Public Use
  Company Number: JP-PFIZER INC-2021109973

PATIENT

DRUGS (2)
  1. LYRICA [Suspect]
     Active Substance: PREGABALIN
     Dosage: ONE TABLET
     Route: 048
  2. LYRICA [Suspect]
     Active Substance: PREGABALIN
     Dosage: UNK
     Route: 048

REACTIONS (5)
  - Illusion [Unknown]
  - Chest pain [Recovering/Resolving]
  - Allergic reaction to excipient [Unknown]
  - Angina pectoris [Recovering/Resolving]
  - Hypersensitivity [Unknown]
